FAERS Safety Report 9889177 (Version 3)
Quarter: 2014Q2

REPORT INFORMATION
  Report Type: Spontaneous
  Country: US (occurrence: None)
  Receive Date: 20140207
  Receipt Date: 20140609
  Transmission Date: 20141212
  Serious: Yes (Hospitalization)
  Sender: FDA-Public Use
  Company Number: 2014SGN00060

PATIENT
  Age: 79 Year
  Sex: Female
  Weight: 70.4 kg

DRUGS (12)
  1. BRENTUXIMAB VEDOTIN [Suspect]
     Indication: HODGKIN^S DISEASE
     Dosage: Q21D
     Route: 042
     Dates: start: 20140107, end: 20140107
  2. BENDAMUSTINE HYDROCHLORIDE (BENDAMUSTINE HYDROCHLORIDE) [Suspect]
     Indication: HODGKIN^S DISEASE
     Dosage: Q21D
     Route: 042
     Dates: start: 20140107, end: 20140108
  3. ACYCLOVIR (ACYCLOVIR) [Concomitant]
  4. LEVOTHYROXINE (LEVOTHYROXINE SODIUM) [Concomitant]
  5. LORAZEPAM (LORAZEPAM) [Concomitant]
  6. OMEPRAZOLE (OMEPRAZOLE) [Concomitant]
  7. ONDANSETRON (ONDANSETRON) [Concomitant]
  8. SIMVASTATIN (SIMVASTATIN) [Concomitant]
  9. SULFAMETHOXAZOLE AND TRIMETHOPRIM (SULFAMETHOXAZOLE, TRIMETHOPRIM) [Concomitant]
  10. VENLAFAXINE (VENLAFAXINE) [Concomitant]
  11. ACETAMINOPHEN (ACETAMINOPHEN) [Concomitant]
  12. IBUPROFEN (IBUPROFEN) [Concomitant]

REACTIONS (16)
  - Mucosal inflammation [None]
  - Dehydration [None]
  - Asthenia [None]
  - Muscular weakness [None]
  - Decreased appetite [None]
  - Fatigue [None]
  - Muscular weakness [None]
  - Chills [None]
  - Pulmonary oedema [None]
  - Pleural effusion [None]
  - Culture urine positive [None]
  - Enterococcus test positive [None]
  - Atrial fibrillation [None]
  - Blood pressure decreased [None]
  - Blood sodium decreased [None]
  - Blood potassium decreased [None]
